FAERS Safety Report 11264831 (Version 1)
Quarter: 2015Q3

REPORT INFORMATION
  Report Type: Report from Study
  Country: US (occurrence: US)
  Receive Date: 20150713
  Receipt Date: 20150713
  Transmission Date: 20151125
  Serious: No
  Sender: FDA-Public Use
  Company Number: PHEH2014US021523

PATIENT
  Sex: Female

DRUGS (4)
  1. DIOVAN [Suspect]
     Active Substance: VALSARTAN
     Indication: MYOSITIS
  2. DIOVAN [Suspect]
     Active Substance: VALSARTAN
     Indication: MYALGIA
  3. VALSARTAN. [Suspect]
     Active Substance: VALSARTAN
     Indication: PRODUCT USED FOR UNKNOWN INDICATION
     Route: 065
  4. DIOVAN [Suspect]
     Active Substance: VALSARTAN
     Indication: ASTHMA
     Dosage: 160 MG, UNK
     Route: 048

REACTIONS (3)
  - Cardiac disorder [Unknown]
  - Hyperhidrosis [Unknown]
  - Tremor [Unknown]
